FAERS Safety Report 9852902 (Version 1)
Quarter: 2014Q1

REPORT INFORMATION
  Report Type: Spontaneous
  Country: US (occurrence: US)
  Receive Date: 20140129
  Receipt Date: 20140129
  Transmission Date: 20141002
  Serious: Yes (Death, Hospitalization, Other)
  Sender: FDA-Public Use
  Company Number: US-PFIZER INC-2014025846

PATIENT
  Age: 55 Year
  Sex: Male
  Weight: 68.03 kg

DRUGS (19)
  1. MORPHINE SULFATE [Suspect]
     Dosage: 30 MG, Q5H
     Route: 065
     Dates: start: 20130709
  2. MORPHINE SULFATE [Suspect]
     Dosage: 30 MG, 4X/DAY (QID)
     Dates: start: 20130125
  3. MORPHINE SULFATE [Suspect]
     Dosage: 30 MG, 3X/DAY (Q8H)
     Dates: start: 20130412
  4. MORPHINE SULFATE [Suspect]
     Dosage: 30 MG, 4X/DAY (QID)
     Dates: start: 20130717
  5. MORPHINE SULFATE [Suspect]
     Dosage: 30 MG, 4X/DAY (QID)
     Dates: start: 20130305
  6. MORPHINE SULFATE [Suspect]
     Dosage: 30 MG, 3X/DAY (Q8H)
     Dates: start: 20130703
  7. MORPHINE SULFATE [Suspect]
     Dosage: 30 MG, 4X/DAY (QID)
     Dates: start: 20130302
  8. MORPHINE SULFATE [Suspect]
     Dosage: 30 MG, 3X/DAY (Q8H)
     Dates: start: 20130109
  9. VALIUM [Concomitant]
     Dosage: UNK
     Dates: start: 20130109
  10. CLONIDINE [Concomitant]
     Dosage: UNK
     Dates: start: 20120808
  11. CELEXA [Concomitant]
     Dosage: UNK
     Dates: start: 20130107
  12. PROCHLORPERAZINE [Concomitant]
     Dosage: UNK
     Dates: start: 20130617
  13. PROPECIA [Concomitant]
     Dosage: UNK
     Dates: start: 20130218
  14. MINOXIDIL [Concomitant]
     Dosage: UNK
  15. BISACODYL [Concomitant]
     Dosage: UNK
     Dates: start: 20130709
  16. LEVITRA [Concomitant]
     Dosage: UNK
     Dates: start: 20120709
  17. LEXAPRO [Concomitant]
     Dosage: UNK
     Dates: start: 20130118
  18. NORCO [Concomitant]
     Dosage: UNK
     Dates: start: 20130625
  19. SIMVASTATIN [Concomitant]
     Dosage: UNK

REACTIONS (7)
  - Cardiac hypertrophy [Fatal]
  - Blood sodium decreased [Unknown]
  - Blood potassium decreased [Unknown]
  - Drug detoxification [Unknown]
  - Back pain [Unknown]
  - Bronchitis [Unknown]
  - Chest pain [Unknown]
